FAERS Safety Report 5421176-3 (Version None)
Quarter: 2007Q3

REPORT INFORMATION
  Report Type: 
  Country: None (occurrence: None)
  Receive Date: 20070816
  Receipt Date: 20070806
  Transmission Date: 20080115
  Serious: Yes (Death)
  Sender: FDA-Public Use
  Company Number: GXKR2007US06768

PATIENT
  Age: 36 Year
  Sex: Male

DRUGS (11)
  1. PREDNISONE [Suspect]
     Indication: IMMUNE RECONSTITUTION SYNDROME
     Dosage: 60 MG, QD
  2. LAMIVUDINE [Concomitant]
  3. TENOFOVIR (TENOFOVIR) [Concomitant]
  4. RITONAVIR (RITONAVIR) [Concomitant]
  5. ATAZANAVIR (ATAZANAVIR) [Concomitant]
  6. DOXORUBICIN HCL [Concomitant]
  7. CEFTRIAXONE [Concomitant]
  8. DOXYCYCLINE [Concomitant]
  9. CLARITHROMYCIN [Concomitant]
  10. ETHAMBUTOL HYDROCHLORIDE [Concomitant]
  11. RIFABUTIN (RIFABUTIN) [Concomitant]

REACTIONS (5)
  - ACUTE RESPIRATORY DISTRESS SYNDROME [None]
  - CONDITION AGGRAVATED [None]
  - KAPOSI'S SARCOMA [None]
  - NECROTISING GRANULOMATOUS LYMPHADENITIS [None]
  - RESPIRATORY FAILURE [None]
